FAERS Safety Report 4729721-8 (Version None)
Quarter: 2005Q3

REPORT INFORMATION
  Report Type: 
  Country: None (occurrence: None)
  Receive Date: 20050801
  Receipt Date: 20050414
  Transmission Date: 20060218
  Serious: Yes (Hospitalization)
  Sender: FDA-Public Use
  Company Number: US-MERCK-0504USA03118

PATIENT
  Age: 69 Year
  Sex: Female
  Weight: 80 kg

DRUGS (3)
  1. VIOXX [Suspect]
     Indication: OSTEOARTHRITIS
     Route: 048
     Dates: start: 20000201, end: 20030401
  2. VIOXX [Suspect]
     Route: 048
     Dates: start: 20030401
  3. ASPIRIN [Concomitant]
     Route: 065

REACTIONS (9)
  - ANTIPHOSPHOLIPID ANTIBODIES POSITIVE [None]
  - AORTIC ATHEROSCLEROSIS [None]
  - APHASIA [None]
  - BLOOD PRESSURE INCREASED [None]
  - BLOOD TRIGLYCERIDES INCREASED [None]
  - CEREBRAL ARTERY OCCLUSION [None]
  - HEMIPARESIS [None]
  - ISCHAEMIC STROKE [None]
  - MOOD ALTERED [None]
